FAERS Safety Report 25875884 (Version 1)
Quarter: 2025Q4

REPORT INFORMATION
  Report Type: Spontaneous
  Country: CA (occurrence: CA)
  Receive Date: 20251003
  Receipt Date: 20251003
  Transmission Date: 20260117
  Serious: No
  Sender: ABBVIE
  Company Number: CA-ABBVIE-6366378

PATIENT

DRUGS (1)
  1. LUMIGAN [Suspect]
     Active Substance: BIMATOPROST
     Indication: Product used for unknown indication
     Dosage: LUMIGAN 0.03% 3 ML, SUSPENSION
     Route: 047

REACTIONS (1)
  - No adverse event [Unknown]
